FAERS Safety Report 4835464-2 (Version None)
Quarter: 2005Q4

REPORT INFORMATION
  Report Type: 
  Country: None (occurrence: None)
  Receive Date: 20051122
  Receipt Date: 20051122
  Transmission Date: 20060501
  Serious: Yes (Hospitalization)
  Sender: FDA-Public Use
  Company Number: None

PATIENT
  Sex: Female
  Weight: 75.4 kg

DRUGS (7)
  1. IRINOTECAN 350MG/M2 PFIZER [Suspect]
     Indication: GLIOBLASTOMA MULTIFORME
     Dosage: 650MG IV (DAY 1, 8,22 AND 29)
     Route: 042
     Dates: start: 20051027
  2. IRINOTECAN 350MG/M2 PFIZER [Suspect]
     Indication: GLIOBLASTOMA MULTIFORME
     Dosage: 650MG IV (DAY 1, 8,22 AND 29)
     Route: 042
     Dates: start: 20051104
  3. BEVACIZUMAB 15MG/KG GENETECH [Suspect]
     Indication: GLIOBLASTOMA MULTIFORME
     Dosage: 1130MG IV (DAY 1 AND 22)
     Route: 042
     Dates: start: 20051027
  4. DILANTIN [Concomitant]
  5. DECADRON [Concomitant]
  6. ZANTAC [Concomitant]
  7. POTASSIUM [Concomitant]

REACTIONS (1)
  - PULMONARY EMBOLISM [None]
